FAERS Safety Report 4395697-9 (Version None)
Quarter: 2004Q3

REPORT INFORMATION
  Report Type: 
  Country: None (occurrence: None)
  Receive Date: 20040709
  Receipt Date: 20040623
  Transmission Date: 20050211
  Serious: Yes (Life-Threatening, Hospitalization)
  Sender: FDA-Public Use
  Company Number: 701984

PATIENT
  Age: 51 Year
  Sex: Male
  Weight: 71.6683 kg

DRUGS (8)
  1. AMEVIVE [Suspect]
     Indication: PSORIASIS
     Dosage: 15 MG QW IM
     Route: 030
     Dates: start: 20031209, end: 20040227
  2. LASIX [Concomitant]
  3. PROTONIX [Concomitant]
  4. SPIRONOLACTONE [Concomitant]
  5. IRON SULFATETHIAMIN COMPOUND TAB [Concomitant]
  6. LEXAPRO [Concomitant]
  7. NEOMYCIN [Concomitant]
  8. LEVAQUIN [Concomitant]

REACTIONS (16)
  - AMMONIA INCREASED [None]
  - ANAEMIA [None]
  - BLOOD ALBUMIN DECREASED [None]
  - BODY TEMPERATURE DECREASED [None]
  - CONDITION AGGRAVATED [None]
  - DEHYDRATION [None]
  - DISEASE RECURRENCE [None]
  - ENCEPHALOPATHY [None]
  - FLUID RETENTION [None]
  - GASTRITIS [None]
  - GASTROINTESTINAL HAEMORRHAGE [None]
  - HAEMATEMESIS [None]
  - HAEMODYNAMIC INSTABILITY [None]
  - HEPATIC CIRRHOSIS [None]
  - MENTAL STATUS CHANGES [None]
  - VARICES OESOPHAGEAL [None]
